FAERS Safety Report 25426799 (Version 1)
Quarter: 2025Q2

REPORT INFORMATION
  Report Type: Spontaneous
  Country: ES (occurrence: ES)
  Receive Date: 20250612
  Receipt Date: 20250612
  Transmission Date: 20250717
  Serious: Yes (Hospitalization)
  Sender: ROCHE
  Company Number: None

PATIENT
  Age: 55 Year
  Sex: Female

DRUGS (2)
  1. OCRELIZUMAB [Suspect]
     Active Substance: OCRELIZUMAB
     Indication: Multiple sclerosis relapse prophylaxis
     Route: 042
     Dates: start: 202105
  2. PRIVIGEN 100 mg/ml SOLUCION PARA PERFUSION, 1 vial de 25 ml [Concomitant]
     Indication: Immunodeficiency
     Route: 042
     Dates: start: 202007

REACTIONS (4)
  - Infusion related reaction [Recovered/Resolved]
  - Cough [Recovered/Resolved]
  - Dyspnoea [Recovered/Resolved]
  - Chest pain [Recovered/Resolved]

NARRATIVE: CASE EVENT DATE: 20250228
